FAERS Safety Report 7764706-9 (Version None)
Quarter: 2011Q3

REPORT INFORMATION
  Report Type: 
  Country: None (occurrence: None)
  Receive Date: 20110919
  Receipt Date: 20110902
  Transmission Date: 20111222
  Serious: Yes (Other)
  Sender: FDA-Public Use
  Company Number: AUR-APL-2011-04914

PATIENT
  Age: 76 Year
  Sex: Male

DRUGS (10)
  1. BETA BLOCKER(BETA BLOCKING AGENTS) [Suspect]
     Indication: PRODUCT USED FOR UNKNOWN INDICATION
  2. FLECAINIDE ACETATE [Suspect]
     Indication: PRODUCT USED FOR UNKNOWN INDICATION
     Dosage: 100 MG (50 MG, 2 IN 1 D)
     Dates: start: 20110704
  3. TAMSULOSIN HCL [Suspect]
     Indication: PRODUCT USED FOR UNKNOWN INDICATION
  4. LOSARTAN POTASSIUM [Concomitant]
  5. LOSAC (OMPRAZOLE) [Concomitant]
  6. FINASTERIDE [Suspect]
     Indication: PRODUCT USED FOR UNKNOWN INDICATION
     Dosage: (5 MG) ,ORAL
     Route: 048
     Dates: start: 20110810
  7. CANDESARTAN CILEXETIL [Suspect]
     Indication: PRODUCT USED FOR UNKNOWN INDICATION
  8. SIMVASTATIN [Suspect]
     Indication: PRODUCT USED FOR UNKNOWN INDICATION
     Dosage: 40 MG (40 MG, 1 IN 1D ), UNKNOWN
     Dates: start: 20110704
  9. SENNA (SENNA ALEXANDRINA) [Concomitant]
  10. ASPIRIN [Suspect]
     Indication: PRODUCT USED FOR UNKNOWN INDICATION
     Dosage: (75 MG),UNKNOWN
     Dates: start: 20110517

REACTIONS (9)
  - VENTRICULAR EXTRASYSTOLES [None]
  - CARDIAC MURMUR [None]
  - HAEMATURIA [None]
  - ATRIOVENTRICULAR BLOCK FIRST DEGREE [None]
  - DRUG INTERACTION [None]
  - PROSTATIC DISORDER [None]
  - BLOOD PRESSURE SYSTOLIC INCREASED [None]
  - PALPITATIONS [None]
  - DIZZINESS POSTURAL [None]
